FAERS Safety Report 11638942 (Version 2)
Quarter: 2015Q4

REPORT INFORMATION
  Report Type: Spontaneous
  Country: IT (occurrence: IT)
  Receive Date: 20151018
  Receipt Date: 20151023
  Transmission Date: 20160304
  Serious: Yes (Other)
  Sender: FDA-Public Use
  Company Number: IT-TEVA-600856ACC

PATIENT
  Age: 39 Year
  Sex: Female

DRUGS (16)
  1. LITHIUM. [Suspect]
     Active Substance: LITHIUM
     Indication: BIPOLAR DISORDER
     Dosage: 900 MILLIGRAM DAILY; 900 MG DAILY
     Route: 048
  2. ZUCLOPENTHIXOL DECANOATE [Suspect]
     Active Substance: ZUCLOPENTHIXOL DECANOATE
     Indication: BIPOLAR DISORDER
     Dosage: 200 MG CYCLICAL
     Route: 030
  3. ZUCLOPENTHIXOL DECANOATE [Suspect]
     Active Substance: ZUCLOPENTHIXOL DECANOATE
     Indication: PSYCHOTIC DISORDER
  4. LORAZEPAM. [Suspect]
     Active Substance: LORAZEPAM
     Indication: OBSESSIVE-COMPULSIVE DISORDER
  5. LORAZEPAM. [Suspect]
     Active Substance: LORAZEPAM
     Indication: DEPRESSION
  6. QUETIAPINE [Suspect]
     Active Substance: QUETIAPINE
     Indication: BIPOLAR DISORDER
     Dosage: 25 MILLIGRAM DAILY; 25 MG DAILY
     Route: 048
  7. LORAZEPAM. [Suspect]
     Active Substance: LORAZEPAM
     Indication: PSYCHOTIC DISORDER
  8. LORAZEPAM. [Suspect]
     Active Substance: LORAZEPAM
     Indication: BIPOLAR DISORDER
     Dosage: 1.25 MILLIGRAM DAILY; 1.25 MG DAILY
     Route: 048
  9. ZUCLOPENTHIXOL DECANOATE [Suspect]
     Active Substance: ZUCLOPENTHIXOL DECANOATE
     Indication: DEPRESSION
  10. LITHIUM. [Suspect]
     Active Substance: LITHIUM
     Indication: PSYCHOTIC DISORDER
  11. QUETIAPINE [Suspect]
     Active Substance: QUETIAPINE
     Indication: OBSESSIVE-COMPULSIVE DISORDER
  12. QUETIAPINE [Suspect]
     Active Substance: QUETIAPINE
     Indication: DEPRESSION
  13. ZUCLOPENTHIXOL DECANOATE [Suspect]
     Active Substance: ZUCLOPENTHIXOL DECANOATE
     Indication: OBSESSIVE-COMPULSIVE DISORDER
  14. LITHIUM. [Suspect]
     Active Substance: LITHIUM
     Indication: DEPRESSION
  15. LITHIUM. [Suspect]
     Active Substance: LITHIUM
     Indication: OBSESSIVE-COMPULSIVE DISORDER
  16. QUETIAPINE [Suspect]
     Active Substance: QUETIAPINE
     Indication: PSYCHOTIC DISORDER

REACTIONS (18)
  - Electrocardiogram QT prolonged [Recovering/Resolving]
  - Extrapyramidal disorder [Recovering/Resolving]
  - Obesity [Recovering/Resolving]
  - Social avoidant behaviour [Unknown]
  - Anxiety [Unknown]
  - Confusional state [Unknown]
  - Asthenia [Unknown]
  - Obsessive thoughts [Unknown]
  - Akathisia [Unknown]
  - Hypersomnia [Unknown]
  - Apathy [Unknown]
  - Anhedonia [Unknown]
  - Abulia [Unknown]
  - Metabolic disorder [Recovering/Resolving]
  - Cotard^s syndrome [Recovering/Resolving]
  - Compulsions [Unknown]
  - Hypothyroidism [Recovering/Resolving]
  - Mood swings [Unknown]
